FAERS Safety Report 6682913-3 (Version None)
Quarter: 2010Q2

REPORT INFORMATION
  Report Type: 
  Country: None (occurrence: None)
  Receive Date: 20100415
  Receipt Date: 20100413
  Transmission Date: 20101027
  Serious: Yes (Hospitalization)
  Sender: FDA-Public Use
  Company Number: B0647000A

PATIENT
  Sex: Male

DRUGS (10)
  1. AUGMENTIN '125' [Suspect]
     Indication: PAROTITIS
     Dosage: 1G THREE TIMES PER DAY
     Route: 042
     Dates: start: 20100306, end: 20100313
  2. SUFENTANIL CITRATE [Suspect]
     Indication: SEDATION
     Dosage: 10MCG TWENTY FOUR TIMES PER DAY
     Route: 042
     Dates: start: 20100306, end: 20100315
  3. CONTRAMAL [Suspect]
     Indication: ANALGESIC INTERVENTION SUPPORTIVE THERAPY
     Dosage: 50MG FOUR TIMES PER DAY
     Route: 042
     Dates: start: 20100311, end: 20100313
  4. ACUPAN [Suspect]
     Indication: DRUG USE FOR UNKNOWN INDICATION
     Dosage: 120MG PER DAY
     Route: 042
     Dates: start: 20100310, end: 20100317
  5. HYPNOVEL [Suspect]
     Indication: SEDATION
     Dosage: 10MG TWENTY FOUR TIMES PER DAY
     Route: 042
     Dates: start: 20100306, end: 20100312
  6. EUPRESSYL [Concomitant]
     Indication: HYPERTENSION
     Dosage: 30MG TWENTY FOUR TIMES PER DAY
     Route: 042
     Dates: start: 20100304, end: 20100306
  7. PRIMPERAN [Concomitant]
     Route: 065
  8. IMODIUM [Concomitant]
     Route: 065
  9. ENALAPRIL MALEATE [Concomitant]
     Route: 065
  10. SPASFON [Concomitant]
     Route: 065

REACTIONS (1)
  - RASH MACULO-PAPULAR [None]
